FAERS Safety Report 20329993 (Version 1)
Quarter: 2022Q1

REPORT INFORMATION
  Report Type: Other
  Country: US (occurrence: None)
  Receive Date: 20220113
  Receipt Date: 20220113
  Transmission Date: 20220423
  Serious: No
  Sender: FDA-Public Use
  Company Number: US-ROCHE-2998527

PATIENT

DRUGS (1)
  1. OCREVUS [Suspect]
     Active Substance: OCRELIZUMAB
     Indication: Multiple sclerosis
     Dosage: LAST DATE OF TREATMENT: 27/DEC/2019, DATE OF NEXT TREATMENT: 25/JUN/2020, DATE OF PREVIOUS INFUSION:
     Route: 065

REACTIONS (1)
  - COVID-19 [Unknown]
